FAERS Safety Report 7792227-6 (Version None)
Quarter: 2011Q4

REPORT INFORMATION
  Report Type: 
  Country: None (occurrence: None)
  Receive Date: 20111003
  Receipt Date: 20111003
  Transmission Date: 20120403
  Serious: Yes (Other)
  Sender: FDA-Public Use
  Company Number: None

PATIENT
  Age: 46 Year
  Sex: Male
  Weight: 68.038 kg

DRUGS (2)
  1. OXYCODONE HCL [Suspect]
     Indication: PAIN
     Dosage: 1X
     Route: 048
     Dates: start: 20090401, end: 20111001
  2. OXYCODONE HCL [Suspect]
     Indication: HEADACHE
     Dosage: 1X
     Route: 048
     Dates: start: 20090401, end: 20111001

REACTIONS (7)
  - PRODUCT FORMULATION ISSUE [None]
  - GASTRIC DISORDER [None]
  - EYE DISORDER [None]
  - VOMITING [None]
  - DIZZINESS [None]
  - ADVERSE DRUG REACTION [None]
  - HEARING IMPAIRED [None]
